FAERS Safety Report 6358919-0 (Version None)
Quarter: 2009Q3

REPORT INFORMATION
  Report Type: 
  Country: None (occurrence: None)
  Receive Date: 20090914
  Receipt Date: 20090902
  Transmission Date: 20100115
  Serious: Yes (Hospitalization, Other)
  Sender: FDA-Public Use
  Company Number: 231848K08USA

PATIENT
  Age: 39 Year
  Sex: Female

DRUGS (10)
  1. XX [Concomitant]
  2. REBIF [Suspect]
     Indication: MULTIPLE SCLEROSIS
     Dosage: 44 MCG, 3 IN 1 WEEKS, SUBCUTNEOUS
     Route: 058
     Dates: start: 20031024
  3. VITAMIN B2 (RIBOFLAVIN) [Concomitant]
  4. ALBUTEROL INHALER (SALBUTAMOL) [Concomitant]
  5. TYLENOL [Concomitant]
  6. HYDROCODONE (HYDROCODONE) [Concomitant]
  7. TOPAMAX [Concomitant]
  8. ANTI-SEIZURE MEDICATION (ANTIEPILEPTICS) [Concomitant]
  9. VITAMIN D [Interacting]
  10. STEROID DROPS (CORTICOSTEROID NOS) [Concomitant]

REACTIONS (8)
  - BLOOD CALCIUM INCREASED [None]
  - BLOOD PRESSURE DIASTOLIC INCREASED [None]
  - MENORRHAGIA [None]
  - MENSTRUATION IRREGULAR [None]
  - NEPHROLITHIASIS [None]
  - PARATHYROID TUMOUR [None]
  - RENAL FAILURE [None]
  - UTERINE LEIOMYOMA [None]
